FAERS Safety Report 18094733 (Version 1)
Quarter: 2020Q3

REPORT INFORMATION
  Report Type: Spontaneous
  Country: GB (occurrence: GB)
  Receive Date: 20200731
  Receipt Date: 20200731
  Transmission Date: 20201103
  Serious: Yes (Other)
  Sender: FDA-Public Use
  Company Number: GB-TEVA-2020-GB-1806535

PATIENT
  Sex: Female

DRUGS (1)
  1. NAPROXEN. [Suspect]
     Active Substance: NAPROXEN
     Indication: BACK PAIN
     Dates: end: 20200624

REACTIONS (7)
  - Bladder disorder [Recovered/Resolved]
  - Skin exfoliation [Unknown]
  - Headache [Unknown]
  - Mood altered [Unknown]
  - Abdominal pain upper [Unknown]
  - Malaise [Unknown]
  - Decreased appetite [Unknown]
